FAERS Safety Report 15744964 (Version 1)
Quarter: 2018Q4

REPORT INFORMATION
  Report Type: Spontaneous
  Country: US (occurrence: US)
  Receive Date: 20181220
  Receipt Date: 20181220
  Transmission Date: 20190205
  Serious: Yes (Other)
  Sender: FDA-Public Use
  Company Number: US-JNJFOC-20181138058

PATIENT
  Age: 83 Year
  Sex: Male

DRUGS (11)
  1. CYANOCOBALAMIN. [Concomitant]
     Active Substance: CYANOCOBALAMIN
     Dosage: 5,000-100 MCG
     Dates: start: 20160504
  2. FLUTICASONE PROPIONATE W/SALMETEROL XINAFOATE [Concomitant]
     Active Substance: FLUTICASONE PROPIONATE\SALMETEROL XINAFOATE
     Dosage: 250-50 MCG/DOSE
     Dates: start: 20160504
  3. LEVOTHYROXINE. [Concomitant]
     Active Substance: LEVOTHYROXINE
     Dates: start: 20160504
  4. LINZESS [Concomitant]
     Active Substance: LINACLOTIDE
     Dates: start: 20171004
  5. PROAIR HFA [Concomitant]
     Active Substance: ALBUTEROL SULFATE
     Dates: start: 20160504
  6. HYDROCORTISONE. [Concomitant]
     Active Substance: HYDROCORTISONE
     Dates: start: 20160504
  7. IMBRUVICA [Suspect]
     Active Substance: IBRUTINIB
     Indication: MANTLE CELL LYMPHOMA
     Route: 065
     Dates: end: 201709
  8. AMLODIPINE BENAZEPRIL [Concomitant]
     Active Substance: AMLODIPINE BESYLATE\BENAZEPRIL HYDROCHLORIDE
     Dosage: 10-40 MG
     Dates: start: 20160504
  9. SINGULAIR [Concomitant]
     Active Substance: MONTELUKAST SODIUM
     Dates: start: 20160504
  10. IMBRUVICA [Suspect]
     Active Substance: IBRUTINIB
     Indication: MANTLE CELL LYMPHOMA
     Route: 065
     Dates: start: 201603
  11. COLACE [Concomitant]
     Active Substance: DOCUSATE SODIUM
     Dates: start: 20160504

REACTIONS (33)
  - Deafness [Unknown]
  - Rash [Unknown]
  - Palpitations [Unknown]
  - Pain in extremity [Unknown]
  - Blindness [Unknown]
  - Oropharyngeal pain [Unknown]
  - Asthenia [Unknown]
  - Heart rate irregular [Unknown]
  - Neck pain [Unknown]
  - Night sweats [Recovered/Resolved]
  - Lymphocytosis [Unknown]
  - Cough [Unknown]
  - Nausea [Unknown]
  - Increased tendency to bruise [Unknown]
  - Feeling of body temperature change [Unknown]
  - Haemoglobin decreased [Recovering/Resolving]
  - Fatigue [Unknown]
  - Pyrexia [Unknown]
  - Abdominal pain [Unknown]
  - Dysphonia [Unknown]
  - Hypoaesthesia [Unknown]
  - Joint swelling [Unknown]
  - Peripheral swelling [Unknown]
  - Dyspnoea [Unknown]
  - Chest pain [Unknown]
  - Disease progression [Unknown]
  - Dizziness [Unknown]
  - Muscle spasms [Unknown]
  - Joint stiffness [Unknown]
  - Musculoskeletal stiffness [Unknown]
  - Breast pain [Unknown]
  - Hyperhidrosis [Unknown]
  - Arthralgia [Unknown]

NARRATIVE: CASE EVENT DATE: 20170823
